FAERS Safety Report 17539847 (Version 1)
Quarter: 2020Q1

REPORT INFORMATION
  Report Type: Spontaneous
  Country: US (occurrence: US)
  Receive Date: 20200313
  Receipt Date: 20200313
  Transmission Date: 20200409
  Serious: Yes (Hospitalization, Disabling, Other)
  Sender: FDA-Public Use
  Company Number: US-ASTRAZENECA-2020SE36048

PATIENT
  Sex: Female

DRUGS (8)
  1. AMLODIPINE [Concomitant]
     Active Substance: AMLODIPINE BESYLATE
  2. HUMOLOG PUMP [Concomitant]
  3. LABETOLOL [Concomitant]
     Active Substance: LABETALOL HYDROCHLORIDE
     Dosage: 200
  4. LISINOPRIL. [Concomitant]
     Active Substance: LISINOPRIL
     Dosage: 40
  5. LIPITOR [Concomitant]
     Active Substance: ATORVASTATIN CALCIUM
     Dosage: 80
  6. SPIRONALACTONE [Concomitant]
     Active Substance: SPIRONOLACTONE
  7. SYMLIN [Suspect]
     Active Substance: PRAMLINTIDE ACETATE
     Indication: TYPE 1 DIABETES MELLITUS
     Dosage: 1 MG/1.5 ML 2 PEN PACK THREE TIMES A DAY
     Route: 058
  8. LASIX [Concomitant]
     Active Substance: FUROSEMIDE
     Dosage: 40

REACTIONS (9)
  - Intentional product misuse [Unknown]
  - Tendon dislocation [Unknown]
  - Sensory loss [Unknown]
  - Glycosylated haemoglobin increased [Unknown]
  - Device issue [Unknown]
  - Drug dose omission by device [Unknown]
  - Tendon rupture [Unknown]
  - Fall [Unknown]
  - Blood glucose increased [Unknown]
